FAERS Safety Report 8853035 (Version 1)
Quarter: 2012Q4

REPORT INFORMATION
  Report Type: 
  Country: JP (occurrence: JP)
  Receive Date: 20121022
  Receipt Date: 20121022
  Transmission Date: 20130627
  Serious: Yes (Other)
  Sender: FDA-Public Use
  Company Number: JP-ASTRAZENECA-2012SE78745

PATIENT
  Age: 42 Year
  Sex: Female

DRUGS (1)
  1. XYLOCAINE POLYAMP [Suspect]
     Route: 065
     Dates: start: 201102, end: 201102

REACTIONS (1)
  - Drug eruption [Unknown]
